FAERS Safety Report 7415988-4 (Version None)
Quarter: 2011Q2

REPORT INFORMATION
  Report Type: 
  Country: None (occurrence: None)
  Receive Date: 20110406
  Receipt Date: 20110323
  Transmission Date: 20111010
  Serious: Yes (Hospitalization, Other)
  Sender: FDA-Public Use
  Company Number: 014530

PATIENT
  Sex: Female
  Weight: 49.1 kg

DRUGS (6)
  1. HYDROCORTISONE [Concomitant]
  2. METRONIDAZOLE [Concomitant]
  3. CERTOLIZUMAB PEGOL (CERTOLIZUMAB PEGOL) [Suspect]
     Indication: CROHN'S DISEASE
     Dosage: (400 MG 1X/MONTH, STUDY C87085 SUBCUTANEOUS), (400 MG, NO OF DOSES RECEIVED:37 SUBCUTANEOUS)
     Route: 058
     Dates: start: 20080714, end: 20110308
  4. PREDNISOLONE [Concomitant]
  5. SALOFALK /00000301/ [Concomitant]
  6. CIPROFLOXACIN [Concomitant]

REACTIONS (6)
  - CONDITION AGGRAVATED [None]
  - POLYP COLORECTAL [None]
  - COLONIC POLYP [None]
  - CROHN'S DISEASE [None]
  - VAGINAL INFLAMMATION [None]
  - ANORECTAL DISORDER [None]
